FAERS Safety Report 4305325-6 (Version None)
Quarter: 2004Q1

REPORT INFORMATION
  Report Type: 
  Country: None (occurrence: None)
  Receive Date: 20040226
  Receipt Date: 20030509
  Transmission Date: 20041129
  Serious: No
  Sender: FDA-Public Use
  Company Number: US-BRISTOL-MYERS SQUIBB COMPANY-12274080

PATIENT
  Age: 45 Year
  Sex: Female
  Weight: 79 kg

DRUGS (11)
  1. TAXOL [Suspect]
     Indication: BREAST CANCER
     Route: 042
     Dates: start: 20030331, end: 20030505
  2. ZOFRAN [Concomitant]
     Indication: PREMEDICATION
     Route: 042
  3. TAGAMET [Concomitant]
     Indication: PREMEDICATION
     Route: 042
  4. BENADRYL [Concomitant]
     Indication: PREMEDICATION
     Route: 042
  5. VITAMIN C [Concomitant]
  6. VITAMIN E [Concomitant]
  7. MULTI-VITAMIN [Concomitant]
  8. CALCIUM [Concomitant]
  9. VITAMIN B6 [Concomitant]
  10. GLUTAMINE [Concomitant]
     Dosage: ^24 HOURS AFTER TREATMENT FOR 3 TO 4 DAYS^
  11. AMBIEN [Concomitant]

REACTIONS (1)
  - ABDOMINAL PAIN LOWER [None]
